FAERS Safety Report 12457461 (Version 1)
Quarter: 2016Q2

REPORT INFORMATION
  Report Type: Spontaneous
  Country: BR (occurrence: BR)
  Receive Date: 20160610
  Receipt Date: 20160610
  Transmission Date: 20160815
  Serious: Yes (Death)
  Sender: FDA-Public Use
  Company Number: BR-SA-2016SA110380

PATIENT

DRUGS (2)
  1. CHLOROQUINE. [Concomitant]
     Active Substance: CHLOROQUINE
     Indication: PLASMODIUM VIVAX INFECTION
     Dosage: 25 MG/KG IN 3 DAYS
  2. PRIMAQUINE [Suspect]
     Active Substance: PRIMAQUINE PHOSPHATE
     Indication: PLASMODIUM VIVAX INFECTION
     Route: 065

REACTIONS (1)
  - Haemolysis [Fatal]
